FAERS Safety Report 16111747 (Version 1)
Quarter: 2019Q1

REPORT INFORMATION
  Report Type: Spontaneous
  Country: JP (occurrence: JP)
  Receive Date: 20190325
  Receipt Date: 20190325
  Transmission Date: 20190418
  Serious: Yes (Death, Hospitalization, Other)
  Sender: FDA-Public Use
  Company Number: JP-BAYER-2018-148156

PATIENT
  Age: 60 Year
  Sex: Male
  Weight: 58.2 kg

DRUGS (12)
  1. LEUPLIN [Concomitant]
     Active Substance: LEUPROLIDE ACETATE
     Dosage: DAILY DOSE 3.75 MG
  2. PROSEXOL [Concomitant]
     Active Substance: ETHINYL ESTRADIOL
     Dosage: DAILY DOSE 1.5 MG
     Route: 048
  3. XOFIGO [Suspect]
     Active Substance: RADIUM RA-223 DICHLORIDE
     Indication: METASTASES TO BONE
     Dosage: 55KBQ/KG, ONCE
     Route: 042
     Dates: start: 20180328, end: 20180328
  4. RANMARK [Concomitant]
     Active Substance: DENOSUMAB
     Dosage: UNK
  5. PREDNISOLONE. [Concomitant]
     Active Substance: PREDNISOLONE
     Dosage: DAILY DOSE 10 MG
     Route: 048
  6. FAMOTIDINE. [Concomitant]
     Active Substance: FAMOTIDINE
     Dosage: DAILY DOSE 20 MG
     Route: 048
  7. XOFIGO [Suspect]
     Active Substance: RADIUM RA-223 DICHLORIDE
     Indication: METASTASES TO BONE
     Dosage: 55KBQ/KG, ONCE
     Route: 042
     Dates: start: 20180131, end: 20180131
  8. XOFIGO [Suspect]
     Active Substance: RADIUM RA-223 DICHLORIDE
     Indication: HORMONE-REFRACTORY PROSTATE CANCER
     Dosage: 55KBQ/KG, ONCE
     Route: 042
     Dates: start: 20180228, end: 20180228
  9. XOFIGO [Suspect]
     Active Substance: RADIUM RA-223 DICHLORIDE
     Indication: METASTASES TO BONE
     Dosage: 55KBQ/KG, ONCE
     Route: 042
     Dates: start: 20180425, end: 20180425
  10. XOFIGO [Suspect]
     Active Substance: RADIUM RA-223 DICHLORIDE
     Indication: METASTASES TO BONE
     Dosage: 55KBQ/KG, ONCE
     Route: 042
     Dates: start: 20180523, end: 20180523
  11. TOYOFAROL [Concomitant]
     Active Substance: ALFACALCIDOL
     Dosage: DAILY DOSE .5 ?G
     Route: 048
  12. CALCIUM LACTATE [Concomitant]
     Active Substance: CALCIUM LACTATE
     Dosage: DAILY DOSE 8 G
     Route: 048

REACTIONS (6)
  - Pancytopenia [Not Recovered/Not Resolved]
  - White blood cell count decreased [Recovering/Resolving]
  - Malaise [Not Recovered/Not Resolved]
  - Hormone-refractory prostate cancer [Fatal]
  - Bone marrow failure [None]
  - Bone pain [Recovering/Resolving]

NARRATIVE: CASE EVENT DATE: 20180223
